FAERS Safety Report 20263903 (Version 1)
Quarter: 2021Q4

REPORT INFORMATION
  Report Type: Spontaneous
  Country: US (occurrence: US)
  Receive Date: 20211231
  Receipt Date: 20211231
  Transmission Date: 20220303
  Serious: Yes (Hospitalization)
  Sender: FDA-Public Use
  Company Number: US-Global Blood Therapeutics Inc-US-GBT-21-04713

PATIENT
  Age: 61 Year
  Sex: Male

DRUGS (1)
  1. OXBRYTA [Suspect]
     Active Substance: VOXELOTOR
     Indication: Sickle cell disease
     Route: 048
     Dates: end: 20211213

REACTIONS (3)
  - Sickle cell anaemia with crisis [Recovered/Resolved]
  - Pneumonia [Recovered/Resolved]
  - Therapy cessation [Unknown]

NARRATIVE: CASE EVENT DATE: 20211201
